FAERS Safety Report 8314682 (Version 2)
Quarter: 2013Q2

REPORT INFORMATION
  Report Type: Spontaneous
  Country: US (occurrence: US)
  Receive Date: 20111229
  Receipt Date: 20130501
  Transmission Date: 20140414
  Serious: Yes (Other)
  Sender: FDA-Public Use
  Company Number: US-ROCHE-790242

PATIENT
  Age: 29 Year
  Sex: Female
  Weight: 74.91 kg

DRUGS (2)
  1. ACCUTANE [Suspect]
     Indication: ACNE
     Route: 048
     Dates: start: 200103, end: 200106
  2. IBUPROFEN [Concomitant]
     Indication: PAIN

REACTIONS (10)
  - Colitis ulcerative [Unknown]
  - Emotional distress [Unknown]
  - Inflammatory bowel disease [Unknown]
  - Depression [Unknown]
  - Diverticulitis [Unknown]
  - Blood cholesterol increased [Unknown]
  - Hepatic enzyme increased [Unknown]
  - Blood triglycerides increased [Unknown]
  - Dry skin [Unknown]
  - Blood alkaline phosphatase increased [Unknown]
